FAERS Safety Report 5834673-3 (Version None)
Quarter: 2008Q3

REPORT INFORMATION
  Report Type: 
  Country: None (occurrence: None)
  Receive Date: 20080805
  Receipt Date: 20080729
  Transmission Date: 20090109
  Serious: Yes (Hospitalization)
  Sender: FDA-Public Use
  Company Number: DE-MERCK-0806DEU00014

PATIENT
  Age: 10 Month
  Sex: Male
  Weight: 7 kg

DRUGS (13)
  1. SINGULAIR [Suspect]
     Indication: BRONCHITIS CHRONIC
     Route: 048
     Dates: start: 20080317, end: 20080415
  2. SINGULAIR [Suspect]
     Indication: COUGH
     Route: 048
     Dates: start: 20080317, end: 20080415
  3. ANTIMICROBIAL (UNSPECIFIED) [Concomitant]
     Route: 065
  4. ALBUTEROL [Concomitant]
     Indication: BRONCHITIS CHRONIC
     Dates: start: 20080301
  5. BUDESONIDE [Concomitant]
     Indication: BRONCHITIS CHRONIC
     Dates: start: 20080301
  6. AMOXICILLIN [Concomitant]
     Indication: BRONCHITIS CHRONIC
     Route: 048
     Dates: start: 20071201
  7. PALIVIZUMAB [Concomitant]
     Route: 065
  8. LACTOBACILLUS RHAMNOSUS [Concomitant]
     Indication: DIARRHOEA
     Route: 065
  9. XYLOMETAZOLINE HYDROCHLORIDE [Concomitant]
     Indication: EAR INFECTION
     Route: 065
  10. CEFUROXIME [Concomitant]
     Indication: EAR INFECTION
     Route: 065
  11. RACECADOTRIL [Concomitant]
     Route: 065
  12. CEFPODOXIME PROXETIL [Concomitant]
     Indication: EAR INFECTION
     Route: 065
  13. IPRATROPIUM BROMIDE [Concomitant]
     Indication: BRONCHITIS CHRONIC
     Route: 065

REACTIONS (8)
  - CONCUSSION [None]
  - CONTUSION [None]
  - CONVULSION [None]
  - FALL [None]
  - GASTROENTERITIS ROTAVIRUS [None]
  - RETINAL HAEMORRHAGE [None]
  - SUBDURAL HAEMATOMA [None]
  - SUBDURAL HYGROMA [None]
